FAERS Safety Report 6908052-1 (Version None)
Quarter: 2010Q3

REPORT INFORMATION
  Report Type: 
  Country: None (occurrence: None)
  Receive Date: 20100712
  Receipt Date: 20100414
  Transmission Date: 20110219
  Serious: No
  Sender: FDA-Public Use
  Company Number: US-000122

PATIENT
  Sex: Female
  Weight: 61 kg

DRUGS (2)
  1. KUVAN [Suspect]
     Indication: PHENYLKETONURIA
     Dosage: 600 MG QD ORAL, 900 MG QD ORAL
     Route: 048
     Dates: start: 20100222, end: 20100401
  2. KUVAN [Suspect]
     Indication: PHENYLKETONURIA
     Dosage: 600 MG QD ORAL, 900 MG QD ORAL
     Route: 048
     Dates: start: 20100401

REACTIONS (2)
  - ADVERSE DRUG REACTION [None]
  - DIZZINESS [None]
